FAERS Safety Report 14507085 (Version 1)
Quarter: 2018Q1

REPORT INFORMATION
  Report Type: Spontaneous
  Country: US (occurrence: US)
  Receive Date: 20180208
  Receipt Date: 20180208
  Transmission Date: 20180509
  Serious: Yes (Hospitalization)
  Sender: FDA-Public Use
  Company Number: US-DSJP-DSU-2017-149554

PATIENT

DRUGS (4)
  1. BENICAR HCT [Suspect]
     Active Substance: HYDROCHLOROTHIAZIDE\OLMESARTAN MEDOXOMIL
     Indication: HYPERTENSION
     Dosage: 20-12.5 MG, QD
     Route: 048
     Dates: start: 20140828, end: 20150718
  2. BENICAR [Suspect]
     Active Substance: OLMESARTAN MEDOXOMIL
     Indication: HYPERTENSION
     Dosage: 20 MG, QD
     Route: 048
     Dates: start: 20131031
  3. BENICAR [Suspect]
     Active Substance: OLMESARTAN MEDOXOMIL
     Dosage: 40 MG, QD
     Route: 048
  4. BENICAR HCT [Suspect]
     Active Substance: HYDROCHLOROTHIAZIDE\OLMESARTAN MEDOXOMIL
     Dosage: 40-12.5 MG, QD
     Route: 048
     Dates: start: 20131105

REACTIONS (14)
  - Dehydration [Recovering/Resolving]
  - Weight decreased [Recovered/Resolved]
  - Large intestine polyp [Unknown]
  - Haematochezia [Not Recovered/Not Resolved]
  - Gastrooesophageal reflux disease [Recovering/Resolving]
  - Rectal polyp [Recovered/Resolved]
  - Irritable bowel syndrome [Recovering/Resolving]
  - Hypotension [Unknown]
  - Syncope [Unknown]
  - Diverticulum [Not Recovered/Not Resolved]
  - Gastrointestinal inflammation [Unknown]
  - Electrolyte imbalance [Recovering/Resolving]
  - Acute kidney injury [Recovered/Resolved]
  - Colitis [Unknown]

NARRATIVE: CASE EVENT DATE: 20130418
